FAERS Safety Report 9800929 (Version 1)
Quarter: 2014Q1

REPORT INFORMATION
  Report Type: Report from Study
  Country: CA (occurrence: CA)
  Receive Date: 20140107
  Receipt Date: 20140107
  Transmission Date: 20141002
  Serious: Yes (Other)
  Sender: FDA-Public Use
  Company Number: CA-JNJFOC-20140100502

PATIENT
  Age: 60 Year
  Sex: Male
  Weight: 88.6 kg

DRUGS (4)
  1. REMICADE [Suspect]
     Indication: COLITIS ULCERATIVE
     Route: 042
     Dates: start: 20130923
  2. TYLENOL [Concomitant]
     Indication: PREMEDICATION
     Route: 048
  3. AERIUS [Concomitant]
     Indication: PREMEDICATION
     Route: 048
  4. HYDROCORTISONE [Concomitant]
     Indication: PREMEDICATION
     Route: 042

REACTIONS (2)
  - Blood iron decreased [Unknown]
  - Contusion [Unknown]
